FAERS Safety Report 6379643-4 (Version None)
Quarter: 2009Q3

REPORT INFORMATION
  Report Type: 
  Country: None (occurrence: None)
  Receive Date: 20090923
  Receipt Date: 20090910
  Transmission Date: 20100115
  Serious: Yes (Death, Hospitalization)
  Sender: FDA-Public Use
  Company Number: 2008AL012230

PATIENT
  Age: 68 Year
  Sex: Female

DRUGS (70)
  1. DIGOXIN [Suspect]
     Indication: ATRIAL FIBRILLATION
     Dosage: 0.25MG, DAILY, PO
     Route: 048
  2. DIGOXIN [Suspect]
     Indication: CARDIAC FAILURE CONGESTIVE
     Dosage: 0.25MG, DAILY, PO
     Route: 048
  3. IODINE [Concomitant]
  4. TARKA [Concomitant]
  5. GLUCOPHAGE [Concomitant]
  6. GLUCOTROL [Concomitant]
  7. PREDNISONE [Concomitant]
  8. DARVOCET [Concomitant]
  9. HYDROCHLOROTHIAZIDE [Concomitant]
  10. MULTI-VITAMINS [Concomitant]
  11. FISH OIL [Concomitant]
  12. CALCIUM [Concomitant]
  13. ASPIRIN [Concomitant]
  14. SULFASALAZINE [Concomitant]
  15. FOLIC ACID [Concomitant]
  16. LANTUS [Concomitant]
  17. HUMALOG [Concomitant]
  18. WELCHOL [Concomitant]
  19. NEXIUM [Concomitant]
  20. TOPROL-XL [Concomitant]
  21. ASPIRIN [Concomitant]
  22. AVAPRO [Concomitant]
  23. AZULFIDINE [Concomitant]
  24. PRILOSEC [Concomitant]
  25. TIKOSYN [Concomitant]
  26. AMLODIPINE [Concomitant]
  27. METHOTREXATE [Concomitant]
  28. FLUZONE [Concomitant]
  29. AZATHIOPRINE [Concomitant]
  30. QUININE SULFATE [Concomitant]
  31. OMEPRAZOLE [Concomitant]
  32. FLUARIX [Concomitant]
  33. NITROGLYCERIN [Concomitant]
  34. PROPOXYPHENE HCL AND ACETAMINOPHEN [Concomitant]
  35. VALTREX [Concomitant]
  36. LISINOPRIL [Concomitant]
  37. FUROSEMIDE [Concomitant]
  38. METOPROLOL [Concomitant]
  39. SIMVASTATIN [Concomitant]
  40. PACERONE [Concomitant]
  41. WARFARIN SODIUM [Concomitant]
  42. MAGNESIUM OXIDE [Concomitant]
  43. AMOXICILLIN [Concomitant]
  44. KETOCONAZOLE [Concomitant]
  45. PROMETHAZINE W/DM [Concomitant]
  46. CEPHALEXIN [Concomitant]
  47. METFORMIN HCL [Concomitant]
  48. ETODOLAC [Concomitant]
  49. GLIPZIDE XL [Concomitant]
  50. CYCLOBENZAPRIINE [Concomitant]
  51. ESTRADIOL [Concomitant]
  52. METHYLPREDNISOLONE [Concomitant]
  53. ZETIA [Concomitant]
  54. ENBREL [Concomitant]
  55. ATENOLOL [Concomitant]
  56. COZAAR [Concomitant]
  57. LEUCOVORIN CALCIUM [Concomitant]
  58. PREVIDENT [Concomitant]
  59. ARAVA [Concomitant]
  60. IODINE XL [Concomitant]
  61. VIOXX [Concomitant]
  62. HYDROXYCHLOROQUINE [Concomitant]
  63. ACTOS [Concomitant]
  64. AMIODARONE HCL [Concomitant]
  65. VITAMIN-MINERAL COMPOUND TAB [Concomitant]
  66. NOVOLOG [Concomitant]
  67. RITUXAN [Concomitant]
  68. MAGNEXIUM OXIDE [Concomitant]
  69. B-D UF III PENNDLE SHORT [Concomitant]
  70. PACERONE [Concomitant]

REACTIONS (19)
  - ANAEMIA [None]
  - ATRIAL FIBRILLATION [None]
  - ATRIAL FLUTTER [None]
  - ATRIOVENTRICULAR BLOCK COMPLETE [None]
  - BLOOD POTASSIUM INCREASED [None]
  - BRADYCARDIA [None]
  - CATARACT OPERATION [None]
  - CHEST DISCOMFORT [None]
  - DIABETIC KETOACIDOSIS [None]
  - ECONOMIC PROBLEM [None]
  - HYPOMAGNESAEMIA [None]
  - HYPOTENSION [None]
  - INJURY [None]
  - MALAISE [None]
  - PAIN [None]
  - PALPITATIONS [None]
  - POST PROCEDURAL COMPLICATION [None]
  - THERAPEUTIC AGENT TOXICITY [None]
  - UPPER GASTROINTESTINAL HAEMORRHAGE [None]
